FAERS Safety Report 7250646-0 (Version None)
Quarter: 2011Q1

REPORT INFORMATION
  Report Type: 
  Country: None (occurrence: None)
  Receive Date: 20110128
  Receipt Date: 20110120
  Transmission Date: 20110831
  Serious: Yes (Hospitalization)
  Sender: FDA-Public Use
  Company Number: JP-JNJFOC-20101102958

PATIENT
  Sex: Female

DRUGS (6)
  1. MAGMITT [Concomitant]
     Indication: CONSTIPATION
     Route: 048
  2. CRAVIT [Suspect]
     Route: 048
  3. PREDNISOLONE [Concomitant]
     Indication: RHEUMATOID ARTHRITIS
     Route: 048
  4. PURSENNID [Concomitant]
     Indication: CONSTIPATION
     Route: 048
  5. CRAVIT [Suspect]
     Indication: PNEUMONIA
     Route: 048
  6. HERBAL EXTRACTS NOS [Concomitant]
     Indication: CONSTIPATION
     Route: 048

REACTIONS (2)
  - DELIRIUM [None]
  - ALTERED STATE OF CONSCIOUSNESS [None]
